FAERS Safety Report 8124756-X (Version None)
Quarter: 2012Q1

REPORT INFORMATION
  Report Type: 
  Country: None (occurrence: None)
  Receive Date: 20120209
  Receipt Date: 20120201
  Transmission Date: 20120608
  Serious: Yes (Other)
  Sender: FDA-Public Use
  Company Number: JP-PFIZER INC-2012026939

PATIENT
  Age: 22 Year
  Sex: Female

DRUGS (1)
  1. ALPRAZOLAM [Suspect]
     Dosage: UNK

REACTIONS (3)
  - OVERDOSE [None]
  - ALTERED STATE OF CONSCIOUSNESS [None]
  - ALCOHOL INTERACTION [None]
